FAERS Safety Report 14166316 (Version 1)
Quarter: 2017Q4

REPORT INFORMATION
  Report Type: Spontaneous
  Country: US (occurrence: US)
  Receive Date: 20171106
  Receipt Date: 20171106
  Transmission Date: 20180321
  Serious: Yes (Disabling)
  Sender: FDA-Public Use
  Company Number: None

PATIENT
  Age: 89 Year
  Sex: Female
  Weight: 103.5 kg

DRUGS (7)
  1. THYROID [Concomitant]
     Active Substance: LEVOTHYROXINE\LIOTHYRONINE
  2. CHOLESTEROL [Concomitant]
     Active Substance: CHOLESTEROL
  3. ASPIRIN. [Concomitant]
     Active Substance: ASPIRIN
  4. BABY ASPIRIN [Concomitant]
     Active Substance: ASPIRIN
  5. PROLIA [Suspect]
     Active Substance: DENOSUMAB
     Indication: BACK PAIN
     Route: 008
  6. CALCIUM [Concomitant]
     Active Substance: CALCIUM
  7. MULTIVITAMIN [Concomitant]
     Active Substance: VITAMINS

REACTIONS (4)
  - Rash [None]
  - Pain [None]
  - Gait disturbance [None]
  - Finger deformity [None]

NARRATIVE: CASE EVENT DATE: 20120101
